FAERS Safety Report 6795293-X (Version None)
Quarter: 2010Q2

REPORT INFORMATION
  Report Type: 
  Country: None (occurrence: None)
  Receive Date: 20100625
  Receipt Date: 20100616
  Transmission Date: 20101027
  Serious: Yes (Hospitalization, Other)
  Sender: FDA-Public Use
  Company Number: US-ASTRAZENECA-2010SE01514

PATIENT
  Age: 46 Year
  Sex: Female

DRUGS (1)
  1. SEROQUEL [Suspect]
     Indication: BIPOLAR I DISORDER
     Route: 048
     Dates: start: 20090101

REACTIONS (11)
  - BLINDNESS [None]
  - CARDIAC DISORDER [None]
  - CATARACT OPERATION [None]
  - CONTUSION [None]
  - FALL [None]
  - GAIT DISTURBANCE [None]
  - GLAUCOMA [None]
  - INJURY [None]
  - PARALYSIS [None]
  - RIB FRACTURE [None]
  - SUICIDAL IDEATION [None]
